FAERS Safety Report 8289684-8 (Version None)
Quarter: 2012Q2

REPORT INFORMATION
  Report Type: 
  Country: None (occurrence: None)
  Receive Date: 20120417
  Receipt Date: 20120416
  Transmission Date: 20120825
  Serious: Yes (Other)
  Sender: FDA-Public Use
  Company Number: US-ROCHE-736576

PATIENT
  Sex: Female
  Weight: 59 kg

DRUGS (2)
  1. ACCUTANE [Suspect]
     Indication: ACNE CYSTIC
     Route: 048
     Dates: start: 19930707, end: 19931101
  2. KENALOG [Concomitant]
     Dosage: 2.5 MG/ML, A TOTAL OF 1ML INJECTED.

REACTIONS (9)
  - ARTHRALGIA [None]
  - INFLAMMATORY BOWEL DISEASE [None]
  - ILEUS [None]
  - OSTEOPENIA [None]
  - CROHN'S DISEASE [None]
  - ANAL FISTULA [None]
  - ANAL ABSCESS [None]
  - DRY SKIN [None]
  - COLITIS ULCERATIVE [None]
